FAERS Safety Report 10049623 (Version 1)
Quarter: 2014Q1

REPORT INFORMATION
  Report Type: Spontaneous
  Country: US (occurrence: None)
  Receive Date: 20140331
  Receipt Date: 20140331
  Transmission Date: 20141002
  Serious: Yes (Hospitalization)
  Sender: FDA-Public Use
  Company Number: None

PATIENT
  Age: 39 Year
  Sex: Female
  Weight: 114.31 kg

DRUGS (1)
  1. DOCETAXEL (STRENGTH UNKNOWN; MFR: SANOFI-AVENTIS) [Suspect]
     Indication: BREAST CANCER
     Route: 042
     Dates: start: 20140305

REACTIONS (5)
  - Pyrexia [None]
  - Syncope [None]
  - Abdominal pain [None]
  - Pain [None]
  - Vomiting [None]
